FAERS Safety Report 5464245-4 (Version None)
Quarter: 2007Q3

REPORT INFORMATION
  Report Type: 
  Country: None (occurrence: None)
  Receive Date: 20070921
  Receipt Date: 20070910
  Transmission Date: 20080115
  Serious: Yes (Life-Threatening)
  Sender: FDA-Public Use
  Company Number: JP-ROCHE-513510

PATIENT
  Age: 87 Year
  Sex: Male
  Weight: 57 kg

DRUGS (1)
  1. ROCEPHIN [Suspect]
     Indication: PYELONEPHRITIS ACUTE
     Dosage: STRENGTH REPORTED AS 1 GRAM BAG.
     Route: 041
     Dates: start: 20070804, end: 20070811

REACTIONS (1)
  - RENAL FAILURE ACUTE [None]
